FAERS Safety Report 24602675 (Version 2)
Quarter: 2024Q4

REPORT INFORMATION
  Report Type: Other
  Country: FR (occurrence: FR)
  Receive Date: 20241111
  Receipt Date: 20241203
  Transmission Date: 20250115
  Serious: Yes (Hospitalization)
  Sender: ZYDUS PHARM
  Company Number: None

PATIENT

DRUGS (7)
  1. TRAMADOL [Suspect]
     Active Substance: TRAMADOL
     Indication: Pain
     Dosage: 1 DOSAGE FORM, QD
     Route: 048
     Dates: start: 2024, end: 202403
  2. IBUPROFEN [Suspect]
     Active Substance: IBUPROFEN
     Indication: Antiinflammatory therapy
     Dosage: 1 DOSAGE FORM, QID
     Route: 048
     Dates: start: 2024, end: 20240628
  3. KETOPROFEN [Suspect]
     Active Substance: KETOPROFEN
     Indication: Pain
     Dosage: 1 DOSAGE FORM, QD
     Route: 048
     Dates: start: 20240201, end: 20240617
  4. PREDNISONE [Suspect]
     Active Substance: PREDNISONE
     Indication: Antiinflammatory therapy
     Dosage: 3 DOSAGE FORM, QD
     Route: 048
     Dates: start: 2024, end: 20240628
  5. PREDNISOLONE SODIUM METAZOATE [Suspect]
     Active Substance: PREDNISOLONE SODIUM METAZOATE
     Indication: Antiinflammatory therapy
     Dosage: 3 DOSAGE FORM, QD
     Route: 048
     Dates: start: 2024, end: 20240628
  6. DOLIPRANE [Suspect]
     Active Substance: ACETAMINOPHEN
     Indication: Pain
     Dosage: 1 DOSAGE FORM, QID
     Route: 048
     Dates: start: 2024, end: 20240610
  7. OMEPRAZOLE [Concomitant]
     Active Substance: OMEPRAZOLE
     Indication: Gastrooesophageal reflux disease
     Dosage: 1 DOSAGE FORM, QD
     Route: 048
     Dates: start: 1994, end: 2024

REACTIONS (1)
  - Fixed eruption [Recovering/Resolving]

NARRATIVE: CASE EVENT DATE: 20240628
